FAERS Safety Report 9534756 (Version 2)
Quarter: 2013Q3

REPORT INFORMATION
  Report Type: Spontaneous
  Country: US (occurrence: US)
  Receive Date: 20130918
  Receipt Date: 20130918
  Transmission Date: 20140515
  Serious: No
  Sender: FDA-Public Use
  Company Number: US-PURDUE-USA-2011-0079827

PATIENT
  Age: 43 Year
  Sex: Female

DRUGS (3)
  1. BUTRANS [Suspect]
     Indication: PAIN
     Dosage: 20 MCG, Q1H
     Route: 062
     Dates: start: 201109
  2. BUTRANS [Suspect]
     Dosage: 10 MCG, Q1H
     Route: 062
     Dates: start: 2011
  3. BUTRANS [Suspect]
     Dosage: 5 MCG, Q1H
     Dates: start: 201108

REACTIONS (10)
  - Oral pain [Unknown]
  - Skin lesion [Unknown]
  - Application site rash [Unknown]
  - Product adhesion issue [Unknown]
  - Malaise [Unknown]
  - Dizziness [Recovered/Resolved]
  - Vomiting [Recovered/Resolved]
  - Extra dose administered [Unknown]
  - Nausea [Unknown]
  - Dry mouth [Unknown]
